FAERS Safety Report 9877108 (Version 1)
Quarter: 2014Q1

REPORT INFORMATION
  Report Type: Spontaneous
  Country: IT (occurrence: IT)
  Receive Date: 20140206
  Receipt Date: 20140206
  Transmission Date: 20141002
  Serious: Yes (Other)
  Sender: FDA-Public Use
  Company Number: IT-BAYER-2014-013600

PATIENT
  Age: 29 Year
  Sex: Female

DRUGS (4)
  1. NIFEDIPINE [Suspect]
     Indication: BLOOD PRESSURE MANAGEMENT
  2. NIFEDIPINE [Suspect]
     Indication: PROTEINURIA
  3. INSULIN [Concomitant]
     Indication: TYPE 1 DIABETES MELLITUS
  4. METHYLDOPA [Concomitant]
     Indication: HYPERTENSION

REACTIONS (2)
  - Exposure during pregnancy [None]
  - Renal impairment [None]
